FAERS Safety Report 16071159 (Version 6)
Quarter: 2019Q4

REPORT INFORMATION
  Report Type: Spontaneous
  Country: US (occurrence: US)
  Receive Date: 20190314
  Receipt Date: 20191217
  Transmission Date: 20200122
  Serious: No
  Sender: FDA-Public Use
  Company Number: US-PFIZER INC-2019103761

PATIENT
  Age: 67 Year
  Sex: Female
  Weight: 107 kg

DRUGS (4)
  1. IBRANCE [Suspect]
     Active Substance: PALBOCICLIB
     Indication: BREAST CANCER FEMALE
     Dosage: 125 MG, UNK
  2. IBRANCE [Suspect]
     Active Substance: PALBOCICLIB
     Dosage: 125 MG, CYCLIC (ONCE DAY FOR 21 DAYS AND 7 OFF, ABOUT NOON EVERYDAY)
     Route: 048
     Dates: start: 201811
  3. FASLODEX [Concomitant]
     Active Substance: FULVESTRANT
     Indication: BREAST CANCER FEMALE
     Dosage: UNK, MONTHLY (2 SHOT ONCE A MONTH)
  4. ONDANSETRON [Concomitant]
     Active Substance: ONDANSETRON
     Indication: NAUSEA
     Dosage: 8 MG, DAILY (EVERYDAY BEFORE IBRANCE)

REACTIONS (5)
  - Hot flush [Unknown]
  - Abdominal pain upper [Unknown]
  - Visual impairment [Unknown]
  - Nausea [Recovered/Resolved]
  - Cough [Unknown]

NARRATIVE: CASE EVENT DATE: 20190526
